FAERS Safety Report 18969435 (Version 2)
Quarter: 2021Q3

REPORT INFORMATION
  Report Type: Report from Study
  Country: US (occurrence: US)
  Receive Date: 20210304
  Receipt Date: 20210906
  Transmission Date: 20211014
  Serious: Yes (Disabling, Other)
  Sender: FDA-Public Use
  Company Number: US-AMRYT PHARMACEUTICALS DAC-AEGR005032

PATIENT
  Age: 63 Year
  Sex: Female

DRUGS (16)
  1. MYALEPT [Suspect]
     Active Substance: METRELEPTIN
     Indication: CONGENITAL GENERALISED LIPODYSTROPHY
     Dosage: 2.5 MILLIGRAM, QD
     Route: 058
     Dates: start: 2019
  2. MYALEPT [Suspect]
     Active Substance: METRELEPTIN
     Dosage: 1.25 MILLIGRAM, QD
     Route: 058
  3. ATORVASTATIN [Concomitant]
     Active Substance: ATORVASTATIN
     Indication: PRODUCT USED FOR UNKNOWN INDICATION
  4. PROBIOTICS NOS [Concomitant]
     Active Substance: PROBIOTICS NOS
     Indication: PRODUCT USED FOR UNKNOWN INDICATION
  5. MAGNESIUM [Concomitant]
     Active Substance: MAGNESIUM
     Indication: PRODUCT USED FOR UNKNOWN INDICATION
  6. MYALEPT [Suspect]
     Active Substance: METRELEPTIN
     Dosage: 0.25 MILLILITER, QD
     Route: 058
  7. BACTERIOSTATIC WATER [Concomitant]
     Active Substance: WATER
     Indication: PRODUCT USED FOR UNKNOWN INDICATION
  8. OMEPRAZOLE. [Concomitant]
     Active Substance: OMEPRAZOLE
     Indication: PRODUCT USED FOR UNKNOWN INDICATION
  9. FENOFIBRATE. [Concomitant]
     Active Substance: FENOFIBRATE
     Indication: PRODUCT USED FOR UNKNOWN INDICATION
  10. LEVOTHYROXINE. [Concomitant]
     Active Substance: LEVOTHYROXINE
     Indication: PRODUCT USED FOR UNKNOWN INDICATION
  11. LOSARTAN. [Concomitant]
     Active Substance: LOSARTAN
     Indication: PRODUCT USED FOR UNKNOWN INDICATION
  12. TYLENOL [Suspect]
     Active Substance: ACETAMINOPHEN
     Indication: ARTHRALGIA
  13. METOPROLOL. [Concomitant]
     Active Substance: METOPROLOL
     Indication: PRODUCT USED FOR UNKNOWN INDICATION
  14. RESTASIS [Concomitant]
     Active Substance: CYCLOSPORINE
     Indication: PRODUCT USED FOR UNKNOWN INDICATION
  15. NORTRIPTYLINE [Concomitant]
     Active Substance: NORTRIPTYLINE
     Indication: PRODUCT USED FOR UNKNOWN INDICATION
  16. OMEGA?3 FISH OIL [Concomitant]
     Active Substance: FISH OIL\OMEGA-3 FATTY ACIDS
     Indication: PRODUCT USED FOR UNKNOWN INDICATION

REACTIONS (11)
  - Abdominal discomfort [Recovered/Resolved]
  - Needle issue [Unknown]
  - Nerve compression [Not Recovered/Not Resolved]
  - Nerve injury [Not Recovered/Not Resolved]
  - Atrioventricular block [Unknown]
  - Device malfunction [Unknown]
  - Back pain [Not Recovered/Not Resolved]
  - Arthralgia [Recovered/Resolved]
  - Injection site haemorrhage [Unknown]
  - Lumbar radiculopathy [Unknown]
  - Rash [Recovered/Resolved]

NARRATIVE: CASE EVENT DATE: 202011
